FAERS Safety Report 7931503-0 (Version None)
Quarter: 2011Q4

REPORT INFORMATION
  Report Type: 
  Country: None (occurrence: None)
  Receive Date: 20111121
  Receipt Date: 20111121
  Transmission Date: 20120403
  Serious: Yes (Life-Threatening, Disabling)
  Sender: FDA-Public Use
  Company Number: None

PATIENT
  Age: 60 Year
  Sex: Female
  Weight: 77.11 kg

DRUGS (2)
  1. SIMVASTATIN [Suspect]
     Indication: BLOOD CHOLESTEROL INCREASED
     Dosage: 1 PILL IN THE A.M.
     Route: 048
     Dates: start: 20090518, end: 20111119
  2. AMLODIPINE-BENAZ [Concomitant]
     Indication: HYPERTENSION
     Dosage: 1 CAPSULE
     Route: 048
     Dates: start: 20090425, end: 20111119

REACTIONS (3)
  - CONSTIPATION [None]
  - FEELING ABNORMAL [None]
  - MYALGIA [None]
